FAERS Safety Report 21518851 (Version 1)
Quarter: 2022Q4

REPORT INFORMATION
  Report Type: Spontaneous
  Country: US (occurrence: None)
  Receive Date: 20221027
  Receipt Date: 20221027
  Transmission Date: 20230113
  Serious: Yes (Disabling)
  Sender: FDA-Public Use
  Company Number: None

PATIENT
  Age: 40 Year
  Sex: Female
  Weight: 73.8 kg

DRUGS (4)
  1. MYFORTIC [Suspect]
     Active Substance: MYCOPHENOLATE SODIUM
     Indication: Renal transplant
     Dosage: FREQUENCY : TWICE A DAY;?
     Route: 048
     Dates: start: 20191115, end: 20221017
  2. CYCLOSPORINE [Concomitant]
     Active Substance: CYCLOSPORINE
     Dates: start: 20220201
  3. Prednisone tabs [Concomitant]
     Dates: start: 20220119
  4. ZETIA [Concomitant]
     Active Substance: EZETIMIBE
     Dates: start: 20220207

REACTIONS (2)
  - Bowel movement irregularity [None]
  - Haematochezia [None]

NARRATIVE: CASE EVENT DATE: 20221007
